FAERS Safety Report 8953378 (Version 2)
Quarter: 2012Q4

REPORT INFORMATION
  Report Type: Report from Study
  Country: NL (occurrence: NL)
  Receive Date: 20121206
  Receipt Date: 20121213
  Transmission Date: 20130627
  Serious: Yes (Hospitalization)
  Sender: FDA-Public Use
  Company Number: NL-JNJFOC-20121114914

PATIENT
  Age: 11 Year
  Sex: Female
  Weight: 32.3 kg

DRUGS (3)
  1. REMICADE [Suspect]
     Indication: CROHN^S DISEASE
     Route: 042
     Dates: start: 20120424
  2. METHOTREXATE [Concomitant]
     Dates: start: 20110524
  3. FOLIC ACID [Concomitant]

REACTIONS (1)
  - Lower gastrointestinal haemorrhage [Recovered/Resolved]
